FAERS Safety Report 21039718 (Version 1)
Quarter: 2022Q3

REPORT INFORMATION
  Report Type: Spontaneous
  Country: US (occurrence: US)
  Receive Date: 20220704
  Receipt Date: 20220704
  Transmission Date: 20221027
  Serious: Yes (Other)
  Sender: FDA-Public Use
  Company Number: US-IMMUNOCORE, LTD.-2022-IMC-000879

PATIENT

DRUGS (1)
  1. KIMMTRAK [Suspect]
     Active Substance: TEBENTAFUSP-TEBN
     Indication: Product used for unknown indication
     Dosage: UNK, SINGLE, DOSE 3

REACTIONS (1)
  - Metastases to central nervous system [Unknown]
